FAERS Safety Report 11211271 (Version 1)
Quarter: 2015Q2

REPORT INFORMATION
  Report Type: Spontaneous
  Country: US (occurrence: None)
  Receive Date: 20150619
  Receipt Date: 20150619
  Transmission Date: 20150821
  Serious: Yes (Hospitalization)
  Sender: FDA-Public Use
  Company Number: None

PATIENT
  Age: 73 Year
  Sex: Female
  Weight: 38 kg

DRUGS (2)
  1. COUMADIN [Suspect]
     Active Substance: WARFARIN SODIUM
  2. COUMADIN [Suspect]
     Active Substance: WARFARIN SODIUM
     Indication: PULMONARY EMBOLISM
     Dosage: RECENT
     Route: 048

REACTIONS (5)
  - International normalised ratio increased [None]
  - Rectal adenocarcinoma [None]
  - Lower gastrointestinal haemorrhage [None]
  - Anaemia [None]
  - Coagulopathy [None]

NARRATIVE: CASE EVENT DATE: 20150127
